FAERS Safety Report 5371273-6 (Version None)
Quarter: 2007Q2

REPORT INFORMATION
  Report Type: 
  Country: None (occurrence: None)
  Receive Date: 20070615
  Receipt Date: 20070206
  Transmission Date: 20071010
  Serious: Yes (Hospitalization)
  Sender: FDA-Public Use
  Company Number: 200618977US

PATIENT
  Age: 93 Year
  Sex: Female

DRUGS (16)
  1. LANTUS [Suspect]
     Indication: DIABETES MELLITUS NON-INSULIN-DEPENDENT
     Dosage: 15 U QD SC
     Route: 058
     Dates: start: 20051101
  2. LANTUS [Suspect]
     Indication: DIABETES MELLITUS NON-INSULIN-DEPENDENT
     Dosage: 22 U QD SC
     Route: 058
     Dates: start: 20061026
  3. OPTICLIK [Suspect]
     Indication: DIABETES MELLITUS NON-INSULIN-DEPENDENT
     Dates: start: 20051101
  4. OPTICLIK [Suspect]
     Indication: DIABETES MELLITUS NON-INSULIN-DEPENDENT
  5. AMARYL [Concomitant]
  6. METFORMIN HYDROCHLORIDE [Concomitant]
  7. BENEMID [Concomitant]
  8. LASIX [Concomitant]
  9. NORVASC [Concomitant]
  10. MICARDIS [Concomitant]
  11. COUMADIN [Concomitant]
  12. DIGOXIN [Concomitant]
  13. POTASSIUM CHLORIDE [Concomitant]
  14. MAGNESIUM OXIDE [Concomitant]
  15. RANITIDINE HYDROCHLORIDE (ZANTAC) [Concomitant]
  16. PROPAFENONE HYDROCHLORIDE [Concomitant]

REACTIONS (1)
  - BLOOD GLUCOSE INCREASED [None]
